FAERS Safety Report 11562463 (Version 1)
Quarter: 2015Q3

REPORT INFORMATION
  Report Type: Spontaneous
  Country: US (occurrence: US)
  Receive Date: 20150916
  Receipt Date: 20150916
  Transmission Date: 20151125
  Serious: No
  Sender: FDA-Public Use
  Company Number: US-ELI_LILLY_AND_COMPANY-US200812001587

PATIENT
  Age: 69 Year
  Sex: Female
  Weight: 75.74 kg

DRUGS (13)
  1. NAPROXEN. [Concomitant]
     Active Substance: NAPROXEN
  2. ANTARA [Concomitant]
     Active Substance: FENOFIBRATE
  3. EFFEXOR [Concomitant]
     Active Substance: VENLAFAXINE HYDROCHLORIDE
  4. WELCHOL [Concomitant]
     Active Substance: COLESEVELAM HYDROCHLORIDE
  5. FORTEO [Suspect]
     Active Substance: TERIPARATIDE
     Indication: OSTEOPOROSIS
     Dosage: 20 UG, DAILY (1/D)
     Dates: start: 20081001, end: 20081203
  6. LYRICA [Concomitant]
     Active Substance: PREGABALIN
  7. LISINOPRIL. [Concomitant]
     Active Substance: LISINOPRIL
  8. NIASPAN [Concomitant]
     Active Substance: NIACIN
  9. NEXIUM [Concomitant]
     Active Substance: ESOMEPRAZOLE MAGNESIUM
  10. LUNESTA [Concomitant]
     Active Substance: ESZOPICLONE
  11. ASPIRIN. [Concomitant]
     Active Substance: ASPIRIN
     Dosage: 81 MG, DAILY (1/D)
  12. XANAX [Concomitant]
     Active Substance: ALPRAZOLAM
  13. TOPAMAX [Concomitant]
     Active Substance: TOPIRAMATE

REACTIONS (7)
  - Migraine [Recovering/Resolving]
  - Dyspnoea [Recovering/Resolving]
  - Dizziness [Recovering/Resolving]
  - Pain [Recovering/Resolving]
  - Asthenia [Recovering/Resolving]
  - Hyperhidrosis [Recovering/Resolving]
  - Body temperature fluctuation [Recovering/Resolving]

NARRATIVE: CASE EVENT DATE: 20081001
